FAERS Safety Report 24001710 (Version 3)
Quarter: 2024Q3

REPORT INFORMATION
  Report Type: Spontaneous
  Country: US (occurrence: US)
  Receive Date: 20240621
  Receipt Date: 20240731
  Transmission Date: 20241017
  Serious: Yes (Hospitalization, Other)
  Sender: PRINSTON PHARMACEUTICAL
  Company Number: US-PRINSTON PHARMACEUTICAL INC.-2024PRN00243

PATIENT

DRUGS (3)
  1. LEVETIRACETAM [Suspect]
     Active Substance: LEVETIRACETAM
     Dosage: 3750 MG, 1X/DAY
     Route: 048
     Dates: start: 202307, end: 202404
  2. LEVETIRACETAM [Suspect]
     Active Substance: LEVETIRACETAM
     Dosage: 3750 MG, 1X/DAY
     Route: 048
     Dates: start: 20240419, end: 2024
  3. LEVETIRACETAM [Suspect]
     Active Substance: LEVETIRACETAM
     Dosage: 3750 MG, 1X/DAY
     Route: 048
     Dates: start: 2024

REACTIONS (5)
  - Drug level decreased [Unknown]
  - Seizure [Recovered/Resolved]
  - Vomiting [Unknown]
  - Unevaluable event [Unknown]
  - Product quality issue [Recovered/Resolved]

NARRATIVE: CASE EVENT DATE: 20240101
